FAERS Safety Report 7268840-1 (Version None)
Quarter: 2011Q1

REPORT INFORMATION
  Report Type: 
  Country: None (occurrence: None)
  Receive Date: 20110201
  Receipt Date: 20110125
  Transmission Date: 20110831
  Serious: Yes (Hospitalization)
  Sender: FDA-Public Use
  Company Number: JP-PFIZER INC-2011019935

PATIENT
  Sex: Female

DRUGS (1)
  1. SUTENT [Suspect]
     Indication: GASTROINTESTINAL STROMAL TUMOUR
     Dosage: 50 MG DAILY FOR 2 WEEKS AND 37.5 MG DAILY FOR 2 WEEKS, CYCLIC
     Route: 048
     Dates: start: 20091201

REACTIONS (3)
  - PERICARDIAL EFFUSION [None]
  - GASTROINTESTINAL OEDEMA [None]
  - OEDEMA [None]
